FAERS Safety Report 17704507 (Version 2)
Quarter: 2021Q2

REPORT INFORMATION
  Report Type: Spontaneous
  Country: US (occurrence: US)
  Receive Date: 20200424
  Receipt Date: 20210428
  Transmission Date: 20210716
  Serious: No
  Sender: FDA-Public Use
  Company Number: US-VERTEX PHARMACEUTICALS-2020-004740

PATIENT
  Age: 27 Year
  Sex: Female

DRUGS (1)
  1. TRIKAFTA [Suspect]
     Active Substance: ELEXACAFTOR\IVACAFTOR\TEZACAFTOR
     Indication: CYSTIC FIBROSIS
     Dosage: ELEXACAFTOR 100MG/ TEZACAFTOR 50MG/ IVACAFTOR 75MG, IVACFTOR 150MG, UNK FREQ
     Route: 048
     Dates: start: 20200129, end: 202002

REACTIONS (2)
  - Mood swings [Unknown]
  - Irritability [Unknown]

NARRATIVE: CASE EVENT DATE: 202001
